FAERS Safety Report 21945651 (Version 1)
Quarter: 2023Q1

REPORT INFORMATION
  Report Type: Spontaneous
  Country: US (occurrence: US)
  Receive Date: 20230202
  Receipt Date: 20230202
  Transmission Date: 20230417
  Serious: No
  Sender: FDA-Public Use
  Company Number: US-SA-SAC20230127001127

PATIENT
  Sex: Female

DRUGS (1)
  1. DUPIXENT [Suspect]
     Active Substance: DUPILUMAB
     Indication: Eosinophilic oesophagitis
     Dosage: 300 MG FREQUENCY: OTHER
     Route: 058
     Dates: start: 202210

REACTIONS (3)
  - Injection site pain [Unknown]
  - Hypersensitivity [Unknown]
  - Product dose omission issue [Unknown]
